FAERS Safety Report 17422063 (Version 2)
Quarter: 2020Q1

REPORT INFORMATION
  Report Type: Spontaneous
  Country: JP (occurrence: JP)
  Receive Date: 20200214
  Receipt Date: 20200219
  Transmission Date: 20200409
  Serious: Yes (Other)
  Sender: FDA-Public Use
  Company Number: JP-ROCHE-2545332

PATIENT
  Age: 3 Decade
  Sex: Female

DRUGS (5)
  1. XOFLUZA [Suspect]
     Active Substance: BALOXAVIR MARBOXIL
     Indication: INFLUENZA
     Dosage: 2 DOSAGE FORMS
     Route: 048
     Dates: start: 20200110
  2. KAKKONTO [CINNAMOMUM CASSIA BARK;EPHEDRA SPP. HERB;GLYCYRRHIZA SPP. RO [Concomitant]
     Active Substance: HERBALS
     Route: 048
     Dates: start: 20200110, end: 20200115
  3. TRANEXAMIC ACID. [Concomitant]
     Active Substance: TRANEXAMIC ACID
     Route: 048
  4. CLOPERASTINE [Concomitant]
     Active Substance: CLOPERASTINE
     Route: 048
     Dates: start: 20200110, end: 20200115
  5. ACETAMINOPHEN. [Concomitant]
     Active Substance: ACETAMINOPHEN
     Route: 048
     Dates: start: 20200110

REACTIONS (2)
  - Abortion missed [Unknown]
  - Maternal exposure during pregnancy [Unknown]

NARRATIVE: CASE EVENT DATE: 20200127
